FAERS Safety Report 25533989 (Version 2)
Quarter: 2025Q3

REPORT INFORMATION
  Report Type: Spontaneous
  Country: IQ (occurrence: IQ)
  Receive Date: 20250709
  Receipt Date: 20250717
  Transmission Date: 20251020
  Serious: Yes (Death, Life-Threatening, Other)
  Sender: PFIZER
  Company Number: IQ-PFIZER INC-PV202500081012

PATIENT
  Age: 35 Year
  Sex: Female

DRUGS (44)
  1. METHYLPREDNISOLONE SODIUM SUCCINATE [Suspect]
     Active Substance: METHYLPREDNISOLONE SODIUM SUCCINATE
     Indication: Systemic lupus erythematosus
     Dates: start: 202312
  2. METHYLPREDNISOLONE SODIUM SUCCINATE [Suspect]
     Active Substance: METHYLPREDNISOLONE SODIUM SUCCINATE
     Indication: Adrenal insufficiency
  3. METHYLPREDNISOLONE SODIUM SUCCINATE [Suspect]
     Active Substance: METHYLPREDNISOLONE SODIUM SUCCINATE
     Indication: Adrenal haemorrhage
  4. HYDROCORTISONE SODIUM SUCCINATE [Suspect]
     Active Substance: HYDROCORTISONE SODIUM SUCCINATE
     Indication: Systemic lupus erythematosus
     Dosage: 100 MG, 2X/DAY
     Dates: start: 202312
  5. HYDROCORTISONE SODIUM SUCCINATE [Suspect]
     Active Substance: HYDROCORTISONE SODIUM SUCCINATE
     Indication: Adrenal insufficiency
  6. HYDROCORTISONE SODIUM SUCCINATE [Suspect]
     Active Substance: HYDROCORTISONE SODIUM SUCCINATE
     Indication: Adrenal haemorrhage
  7. APIXABAN [Suspect]
     Active Substance: APIXABAN
     Indication: Systemic lupus erythematosus
     Dosage: 5 MG, 2X/DAY
     Dates: start: 202312
  8. APIXABAN [Suspect]
     Active Substance: APIXABAN
     Indication: Adrenal insufficiency
  9. APIXABAN [Suspect]
     Active Substance: APIXABAN
     Indication: Adrenal haemorrhage
  10. HEPARIN [Suspect]
     Active Substance: HEPARIN SODIUM
     Indication: Systemic lupus erythematosus
     Dosage: 1 ML, 12H
     Dates: start: 202312
  11. HEPARIN [Suspect]
     Active Substance: HEPARIN SODIUM
     Indication: Adrenal insufficiency
  12. HEPARIN [Suspect]
     Active Substance: HEPARIN SODIUM
     Indication: Adrenal haemorrhage
  13. CEFOTAXIME [Suspect]
     Active Substance: CEFOTAXIME SODIUM
     Indication: Systemic lupus erythematosus
     Dates: start: 202312
  14. CEFOTAXIME [Suspect]
     Active Substance: CEFOTAXIME SODIUM
     Indication: Adrenal insufficiency
  15. CEFOTAXIME [Suspect]
     Active Substance: CEFOTAXIME SODIUM
     Indication: Adrenal haemorrhage
  16. ACETAMINOPHEN [Suspect]
     Active Substance: ACETAMINOPHEN
     Indication: Systemic lupus erythematosus
     Dates: start: 202312
  17. ACETAMINOPHEN [Suspect]
     Active Substance: ACETAMINOPHEN
     Indication: Adrenal insufficiency
  18. ACETAMINOPHEN [Suspect]
     Active Substance: ACETAMINOPHEN
     Indication: Adrenal haemorrhage
  19. OMEPRAZOLE [Suspect]
     Active Substance: OMEPRAZOLE
     Indication: Systemic lupus erythematosus
     Dates: start: 202312
  20. OMEPRAZOLE [Suspect]
     Active Substance: OMEPRAZOLE
     Indication: Adrenal insufficiency
  21. OMEPRAZOLE [Suspect]
     Active Substance: OMEPRAZOLE
     Indication: Adrenal haemorrhage
  22. DICLOFENAC [Suspect]
     Active Substance: DICLOFENAC
     Indication: Systemic lupus erythematosus
     Dates: start: 202312
  23. DICLOFENAC [Suspect]
     Active Substance: DICLOFENAC
     Indication: Adrenal insufficiency
  24. DICLOFENAC [Suspect]
     Active Substance: DICLOFENAC
     Indication: Adrenal haemorrhage
  25. LACTATED RINGERS SOLUTION [Suspect]
     Active Substance: CALCIUM CHLORIDE\POTASSIUM CHLORIDE\SODIUM CHLORIDE\SODIUM LACTATE
     Indication: Systemic lupus erythematosus
     Dates: start: 202312
  26. LACTATED RINGERS SOLUTION [Suspect]
     Active Substance: CALCIUM CHLORIDE\POTASSIUM CHLORIDE\SODIUM CHLORIDE\SODIUM LACTATE
     Indication: Adrenal insufficiency
  27. LACTATED RINGERS SOLUTION [Suspect]
     Active Substance: CALCIUM CHLORIDE\POTASSIUM CHLORIDE\SODIUM CHLORIDE\SODIUM LACTATE
     Indication: Adrenal haemorrhage
  28. HYDROXYCHLOROQUINE [Suspect]
     Active Substance: HYDROXYCHLOROQUINE
     Indication: Systemic lupus erythematosus
     Dosage: 200 MG, 2X/DAY
     Dates: start: 202312
  29. HYDROXYCHLOROQUINE [Suspect]
     Active Substance: HYDROXYCHLOROQUINE
     Indication: Adrenal insufficiency
  30. HYDROXYCHLOROQUINE [Suspect]
     Active Substance: HYDROXYCHLOROQUINE
     Indication: Adrenal haemorrhage
  31. NAPROXEN [Suspect]
     Active Substance: NAPROXEN
     Indication: Systemic lupus erythematosus
     Dates: start: 202312
  32. NAPROXEN [Suspect]
     Active Substance: NAPROXEN
     Indication: Adrenal insufficiency
  33. NAPROXEN [Suspect]
     Active Substance: NAPROXEN
     Indication: Adrenal haemorrhage
  34. RITUXIMAB [Suspect]
     Active Substance: RITUXIMAB
     Indication: Systemic lupus erythematosus
     Dates: start: 20250103
  35. RITUXIMAB [Suspect]
     Active Substance: RITUXIMAB
     Indication: Adrenal insufficiency
  36. ENOXAPARIN [Concomitant]
     Active Substance: ENOXAPARIN
     Dates: start: 2023
  37. POTASSIUM CHLORIDE [Concomitant]
     Active Substance: POTASSIUM CHLORIDE
     Dates: start: 202311
  38. SODIUM CHLORIDE [Concomitant]
     Active Substance: SODIUM CHLORIDE
     Dates: start: 202311
  39. OMEPRAZOLE [Concomitant]
     Active Substance: OMEPRAZOLE
     Dates: start: 202311
  40. METRONIDAZOLE [Concomitant]
     Active Substance: METRONIDAZOLE
     Dates: start: 202311
  41. MEPERIDINE [Concomitant]
     Active Substance: MEPERIDINE
     Dates: start: 202311
  42. VANCOMYCIN [Concomitant]
     Active Substance: VANCOMYCIN
     Dates: start: 2023
  43. MOXIFLOXACIN [Concomitant]
     Active Substance: MOXIFLOXACIN
     Dates: start: 2023
  44. HYDROCORTISONE [Concomitant]
     Active Substance: HYDROCORTISONE
     Dosage: 100 MG, 12H
     Dates: start: 202312

REACTIONS (1)
  - Drug ineffective [Fatal]

NARRATIVE: CASE EVENT DATE: 20240105
